FAERS Safety Report 6763747-8 (Version None)
Quarter: 2010Q2

REPORT INFORMATION
  Report Type: 
  Country: None (occurrence: None)
  Receive Date: 20100610
  Receipt Date: 20100603
  Transmission Date: 20101027
  Serious: Yes (Hospitalization, Other)
  Sender: FDA-Public Use
  Company Number: IL-ROCHE-699977

PATIENT
  Sex: Female
  Weight: 69 kg

DRUGS (7)
  1. PEGINTERFERON ALFA-2A [Suspect]
     Route: 058
     Dates: start: 20091206
  2. PEGINTERFERON ALFA-2A [Suspect]
     Route: 058
     Dates: start: 20091213, end: 20100418
  3. PEGINTERFERON ALFA-2A [Suspect]
     Route: 058
     Dates: end: 20100426
  4. RIBAVIRIN [Suspect]
     Route: 048
     Dates: start: 20091206
  5. RIBAVIRIN [Suspect]
     Route: 048
     Dates: start: 20091213, end: 20100426
  6. NOVONORM [Concomitant]
     Route: 048
     Dates: start: 20010601
  7. NOVONORM [Concomitant]
     Dosage: DOSE- 0.5X 3D
     Route: 048

REACTIONS (4)
  - EYE HAEMORRHAGE [None]
  - RETINAL HAEMORRHAGE [None]
  - VASCULITIS [None]
  - VISION BLURRED [None]
